FAERS Safety Report 9196186 (Version 1)
Quarter: 2013Q1

REPORT INFORMATION
  Report Type: Spontaneous
  Country: US (occurrence: None)
  Receive Date: 20120709
  Receipt Date: 20120709
  Transmission Date: 20140127
  Serious: No
  Sender: FDA-Public Use
  Company Number: 2012HGS-003702

PATIENT
  Age: 52 Year
  Sex: Female
  Weight: 90.72 kg

DRUGS (9)
  1. BENLYSTA [Suspect]
     Indication: SYSTEMIC LUPUS ERYTHEMATOSUS
     Dosage: 28 D, INTRAVENOUS DRIP
     Dates: start: 20120430
  2. PREDNISONE (PREDNISONE) [Concomitant]
  3. PLAQUENIL (HYDROXYCHLOROQUINE PHOSPHATE) [Concomitant]
  4. WELLBUTRIN (BUPROPION HYDROCHLORIDE) [Concomitant]
  5. CELEXA (CITALOPRAM HYDROCHLORIDE) [Concomitant]
  6. AMBIEN (ZOLPIDEM TARTRATE) [Concomitant]
  7. TOPAMAX (TOPIRAMATE) [Concomitant]
  8. ZANAFLEX (TIZANIDINE HYDROCHLORIDE) [Concomitant]
  9. LORTAB (CHLORPHENAMINE MALEATE) [Concomitant]

REACTIONS (5)
  - Bronchitis [None]
  - Productive cough [None]
  - Wheezing [None]
  - Pyrexia [None]
  - Urinary tract infection [None]
